FAERS Safety Report 11052857 (Version 1)
Quarter: 2015Q2

REPORT INFORMATION
  Report Type: Spontaneous
  Country: IT (occurrence: None)
  Receive Date: 20150417
  Receipt Date: 20150417
  Transmission Date: 20150821
  Serious: Yes (Other)
  Sender: FDA-Public Use
  Company Number: IT-H14001-15-00548

PATIENT
  Age: 43 Year
  Sex: Female
  Weight: 76 kg

DRUGS (1)
  1. AMIODARONE [Suspect]
     Active Substance: AMIODARONE
     Indication: ATRIAL FIBRILLATION
     Route: 042
     Dates: start: 20150404, end: 20150404

REACTIONS (5)
  - Flushing [None]
  - Tremor [None]
  - Hyperhidrosis [None]
  - Hypertensive crisis [None]
  - Terminal state [None]

NARRATIVE: CASE EVENT DATE: 20150404
